FAERS Safety Report 4754840-X (Version None)
Quarter: 2005Q3

REPORT INFORMATION
  Report Type: 
  Country: None (occurrence: None)
  Receive Date: 20050829
  Receipt Date: 20050819
  Transmission Date: 20060218
  Serious: Yes (Other)
  Sender: FDA-Public Use
  Company Number: US-MERCK-0508USA03386

PATIENT
  Age: 6 Year
  Sex: Male

DRUGS (2)
  1. SINGULAIR [Suspect]
     Indication: BRONCHOSPASM
     Route: 048
     Dates: start: 20050101, end: 20050801
  2. SINGULAIR [Suspect]
     Indication: HYPERSENSITIVITY
     Route: 048
     Dates: start: 20050101, end: 20050801

REACTIONS (1)
  - IDIOPATHIC THROMBOCYTOPENIC PURPURA [None]
